FAERS Safety Report 5336006-8 (Version None)
Quarter: 2007Q1

REPORT INFORMATION
  Report Type: 
  Country: None (occurrence: None)
  Receive Date: 20070302
  Receipt Date: 20070104
  Transmission Date: 20070707
  Serious: No
  Sender: FDA-Public Use
  Company Number: PHEH2007US00587

PATIENT
  Age: 22 Year
  Sex: Female

DRUGS (3)
  1. ENABLEX [Suspect]
     Indication: HYPERTONIC BLADDER
     Dosage: 15 MG, QD
     Dates: start: 20061214
  2. ELMIRON [Suspect]
     Dosage: 100 MG, QD
     Dates: start: 20061214
  3. ANTIBIOTICS (NO INGREDIENTS/SUBSTANCES) [Concomitant]

REACTIONS (2)
  - VAGINAL ODOUR [None]
  - VULVOVAGINAL DRYNESS [None]
